FAERS Safety Report 10890793 (Version 1)
Quarter: 2015Q1

REPORT INFORMATION
  Report Type: Spontaneous
  Country: DE (occurrence: DE)
  Receive Date: 20150305
  Receipt Date: 20150305
  Transmission Date: 20150721
  Serious: Yes (Hospitalization)
  Sender: FDA-Public Use
  Company Number: DE-009507513-1502DEU009593

PATIENT
  Age: 3 Year
  Sex: Female
  Weight: 15.6 kg

DRUGS (2)
  1. LORZAAR 2,5 MG/ML PULVER UND L?SUNGSMITTEL ZUR HERSTELLUNG EINER SUSPE [Suspect]
     Active Substance: LOSARTAN POTASSIUM
     Indication: HYPERTENSION
     Dosage: UNDERDOSE, POWDER MIXED WITH 473ML, INSTEAD OF JUST 200ML OF SOLVENT
     Dates: start: 20150117, end: 20150117
  2. LORZAAR 2,5 MG/ML PULVER UND L?SUNGSMITTEL ZUR HERSTELLUNG EINER SUSPE [Suspect]
     Active Substance: LOSARTAN POTASSIUM
     Dosage: 10 MG, UNK
     Dates: start: 2015

REACTIONS (3)
  - No adverse event [Unknown]
  - Wrong technique in drug usage process [Unknown]
  - Underdose [Unknown]

NARRATIVE: CASE EVENT DATE: 20150117
